FAERS Safety Report 15923438 (Version 1)
Quarter: 2019Q1

REPORT INFORMATION
  Report Type: Spontaneous
  Country: US (occurrence: US)
  Receive Date: 20190206
  Receipt Date: 20190206
  Transmission Date: 20190417
  Serious: Yes (Hospitalization)
  Sender: FDA-Public Use
  Company Number: US-EMMAUS MEDICAL, INC.-EMM201901-000027

PATIENT
  Age: 36 Year
  Sex: Female

DRUGS (1)
  1. ENDARI [Suspect]
     Active Substance: GLUTAMINE
     Indication: SICKLE CELL DISEASE
     Route: 048
     Dates: start: 20180803

REACTIONS (4)
  - Underdose [Recovered/Resolved]
  - Road traffic accident [Recovered/Resolved]
  - Contusion [Recovered/Resolved]
  - Sickle cell anaemia with crisis [Recovered/Resolved]

NARRATIVE: CASE EVENT DATE: 20181205
